FAERS Safety Report 16968691 (Version 2)
Quarter: 2025Q4

REPORT INFORMATION
  Report Type: Spontaneous
  Country: EU (occurrence: EU)
  Receive Date: 20191029
  Receipt Date: 20251113
  Transmission Date: 20260117
  Serious: Yes (Other)
  Sender: AUROBINDO
  Company Number: EU-AUROBINDO-AUR-APL-2019-056718

PATIENT
  Age: 65 Year
  Sex: Male

DRUGS (3)
  1. METFORMIN HYDROCHLORIDE [Suspect]
     Active Substance: METFORMIN HYDROCHLORIDE
     Indication: Type 2 diabetes mellitus
     Dosage: UNK
     Route: 048
  2. ALPRAZOLAM [Concomitant]
     Active Substance: ALPRAZOLAM
     Indication: Panic attack
     Dosage: 2 MILLIGRAM, DAILY
     Route: 065
  3. CITALOPRAM [Concomitant]
     Active Substance: CITALOPRAM
     Indication: Panic attack
     Dosage: 10 MILLIGRAM, ONCE A DAY
     Route: 065

REACTIONS (2)
  - Panic attack [Recovered/Resolved]
  - Blood lactic acid increased [Unknown]

NARRATIVE: CASE EVENT DATE: 20180401
